FAERS Safety Report 5641078-7 (Version None)
Quarter: 2008Q1

REPORT INFORMATION
  Report Type: 
  Country: None (occurrence: None)
  Receive Date: 20080225
  Receipt Date: 20080208
  Transmission Date: 20080703
  Serious: Yes (Hospitalization, Other)
  Sender: FDA-Public Use
  Company Number: 230001J08DEU

PATIENT
  Age: 27 Year
  Sex: Female
  Weight: 69 kg

DRUGS (1)
  1. REBIF [Suspect]
     Indication: MULTIPLE SCLEROSIS RELAPSE
     Dosage: 33 MCG, 3 IN 1 WEEKS, SUBCUTANEOUS
     Route: 058
     Dates: start: 20071217, end: 20080104

REACTIONS (5)
  - DIARRHOEA [None]
  - EPILEPSY [None]
  - INFLUENZA [None]
  - INSOMNIA [None]
  - VOMITING [None]
